FAERS Safety Report 21721033 (Version 1)
Quarter: 2022Q4

REPORT INFORMATION
  Report Type: Spontaneous
  Country: US (occurrence: None)
  Receive Date: 20221212
  Receipt Date: 20221212
  Transmission Date: 20230113
  Serious: Yes (Hospitalization)
  Sender: FDA-Public Use
  Company Number: None

PATIENT
  Age: 59 Year
  Sex: Female

DRUGS (1)
  1. CILGAVIMAB\TIXAGEVIMAB [Suspect]
     Active Substance: CILGAVIMAB\TIXAGEVIMAB
     Indication: COVID-19 prophylaxis
     Dosage: OTHER FREQUENCY : ONCE;?
     Route: 030
     Dates: start: 20221128, end: 20221128

REACTIONS (8)
  - Palpitations [None]
  - Hypoglycaemia [None]
  - Hypomagnesaemia [None]
  - Hypertransaminasaemia [None]
  - Gap junction protein beta 2 gene mutation [None]
  - Hypoxia [None]
  - Arrhythmia [None]
  - Supraventricular tachycardia [None]

NARRATIVE: CASE EVENT DATE: 20221204
